FAERS Safety Report 4971478-X (Version None)
Quarter: 2006Q2

REPORT INFORMATION
  Report Type: 
  Country: None (occurrence: None)
  Receive Date: 20060413
  Receipt Date: 20060321
  Transmission Date: 20061013
  Serious: Yes (Other)
  Sender: FDA-Public Use
  Company Number: PHFR2006GB01206

PATIENT
  Age: 68 Year
  Sex: Male

DRUGS (12)
  1. PAMIDRONATE DISODIUM [Suspect]
     Indication: BONE PAIN
     Dosage: UNK, UNK
     Dates: end: 20030513
  2. MELPHALAN [Concomitant]
     Indication: BONE PAIN
     Dosage: UNK, UNK
  3. MORPHINE [Concomitant]
     Indication: PAIN
     Dosage: 10 MG, BID
     Dates: start: 20020201
  4. DICLOFENAC [Suspect]
     Indication: PAIN
     Dosage: 75 MG, BID
     Dates: start: 20020201, end: 20020301
  5. THALIDOMIDE [Concomitant]
     Dosage: 100 MG, BID
  6. INDORAMIN [Concomitant]
     Dosage: 20 MG, QN
  7. QUININE SULFATE [Concomitant]
     Dosage: 200 MG, QN
  8. PANTOPRAZOLE [Concomitant]
     Dosage: 20 MG, QD
  9. ATORVASTATIN CALCIUM [Concomitant]
     Dosage: 10 MG, QN
  10. AMITRIPTYLINE HCL [Concomitant]
     Dosage: 10 MG, QN
  11. ZOPICLONE [Concomitant]
     Dosage: 3.75 MG, QN
  12. TRAMADOL [Concomitant]
     Dosage: 50 MG, QID

REACTIONS (4)
  - BLOOD CREATININE INCREASED [None]
  - BLOOD SODIUM DECREASED [None]
  - HAEMOGLOBIN DECREASED [None]
  - RENAL FAILURE [None]
